FAERS Safety Report 18926689 (Version 1)
Quarter: 2021Q1

REPORT INFORMATION
  Report Type: Report from Study
  Country: None (occurrence: CA)
  Receive Date: 20210223
  Receipt Date: 20210223
  Transmission Date: 20210420
  Serious: Yes (Other)
  Sender: FDA-Public Use
  Company Number: CA-ABBVIE-20K-028-3526305-00

PATIENT
  Sex: Female

DRUGS (1)
  1. RINVOQ [Suspect]
     Active Substance: UPADACITINIB
     Indication: RHEUMATOID ARTHRITIS
     Route: 048
     Dates: start: 20200518, end: 20210215

REACTIONS (11)
  - Muscle spasms [Unknown]
  - Mobility decreased [Unknown]
  - Osteoarthritis [Unknown]
  - Illness [Unknown]
  - Limb deformity [Unknown]
  - Muscle spasms [Not Recovered/Not Resolved]
  - Seizure [Recovered/Resolved]
  - Diarrhoea [Unknown]
  - Gastroenteritis [Unknown]
  - Sleep disorder [Unknown]
  - Sciatic nerve neuropathy [Not Recovered/Not Resolved]

NARRATIVE: CASE EVENT DATE: 2020
